FAERS Safety Report 12788254 (Version 1)
Quarter: 2016Q3

REPORT INFORMATION
  Report Type: Report from Study
  Country: US (occurrence: US)
  Receive Date: 20160928
  Receipt Date: 20160928
  Transmission Date: 20161109
  Serious: No
  Sender: FDA-Public Use
  Company Number: US-AMGEN-USASL2016130262

PATIENT
  Age: 58 Year
  Sex: Male

DRUGS (3)
  1. SUMATRIPTAN. [Concomitant]
     Active Substance: SUMATRIPTAN
     Indication: MIGRAINE
     Dosage: UNK
  2. ENBREL [Suspect]
     Active Substance: ETANERCEPT
     Indication: RHEUMATOID ARTHRITIS
     Dosage: UNK
     Route: 065
     Dates: start: 20160908
  3. SIMVASTATIN. [Concomitant]
     Active Substance: SIMVASTATIN
     Dosage: UNK

REACTIONS (6)
  - Chills [Unknown]
  - Contusion [Unknown]
  - Blood cholesterol increased [Unknown]
  - Injection site inflammation [Unknown]
  - Hyperhidrosis [Unknown]
  - Skin mass [Unknown]

NARRATIVE: CASE EVENT DATE: 201609
